FAERS Safety Report 17522087 (Version 2)
Quarter: 2020Q1

REPORT INFORMATION
  Report Type: Spontaneous
  Country: US (occurrence: US)
  Receive Date: 20200310
  Receipt Date: 20200324
  Transmission Date: 20200409
  Serious: Yes (Hospitalization)
  Sender: FDA-Public Use
  Company Number: US-UPSHER-SMITH LABORATORIES, LLC-2020USL00125

PATIENT
  Age: 79 Year
  Sex: Male
  Weight: 66.49 kg

DRUGS (3)
  1. TESTOSTERONE. [Suspect]
     Active Substance: TESTOSTERONE
     Dosage: 50 MG, 1X/DAY
     Route: 061
     Dates: start: 202001
  2. TESTOSTERONE. [Suspect]
     Active Substance: TESTOSTERONE
     Dosage: 50 MG, EVERY 72 HOURS
     Route: 061
     Dates: start: 201912, end: 202001
  3. TESTOSTERONE. [Suspect]
     Active Substance: TESTOSTERONE
     Indication: BLOOD TESTOSTERONE DECREASED
     Dosage: 50 MG, 1X/DAY
     Route: 061
     Dates: start: 2010, end: 201912

REACTIONS (10)
  - Burning sensation [Recovering/Resolving]
  - Inappropriate schedule of product administration [Recovered/Resolved]
  - Calcinosis [Not Recovered/Not Resolved]
  - Paraesthesia [Recovering/Resolving]
  - Nervous system disorder [Recovering/Resolving]
  - Aortic aneurysm rupture [Recovered/Resolved]
  - Vein disorder [Unknown]
  - Memory impairment [Not Recovered/Not Resolved]
  - Aortic aneurysm [Recovered/Resolved]
  - Peripheral swelling [Recovering/Resolving]

NARRATIVE: CASE EVENT DATE: 2017
